FAERS Safety Report 16247026 (Version 1)
Quarter: 2019Q2

REPORT INFORMATION
  Report Type: Report from Study
  Country: None (occurrence: BR)
  Receive Date: 20190427
  Receipt Date: 20190427
  Transmission Date: 20190711
  Serious: Yes (Other)
  Sender: FDA-Public Use
  Company Number: BR-ABBVIE-19K-020-2756463-00

PATIENT
  Age: 57 Year
  Sex: Female
  Weight: 72 kg

DRUGS (1)
  1. HUMIRA [Suspect]
     Active Substance: ADALIMUMAB
     Indication: ANKYLOSING SPONDYLITIS
     Route: 058

REACTIONS (11)
  - Tuberculosis [Unknown]
  - Autoimmune thyroid disorder [Unknown]
  - Vision blurred [Unknown]
  - Immunodeficiency [Unknown]
  - Mass [Unknown]
  - Eye pruritus [Unknown]
  - Pterygium [Unknown]
  - Visual acuity reduced [Unknown]
  - Inflammation [Unknown]
  - Lacrimation increased [Unknown]
  - Eye irritation [Unknown]

NARRATIVE: CASE EVENT DATE: 201803
